FAERS Safety Report 17605265 (Version 1)
Quarter: 2020Q1

REPORT INFORMATION
  Report Type: Spontaneous
  Country: US (occurrence: US)
  Receive Date: 20200330
  Receipt Date: 20200330
  Transmission Date: 20200409
  Serious: Yes (Hospitalization, Other)
  Sender: FDA-Public Use
  Company Number: None

PATIENT
  Age: 48 Year
  Sex: Male

DRUGS (14)
  1. METOPROL TAR [Concomitant]
  2. FUROSEMIDE. [Concomitant]
     Active Substance: FUROSEMIDE
  3. TADALAFIL. [Concomitant]
     Active Substance: TADALAFIL
  4. AMOXICILLIN. [Concomitant]
     Active Substance: AMOXICILLIN
  5. SIMVASTATIN. [Concomitant]
     Active Substance: SIMVASTATIN
  6. OXYCODONE [Concomitant]
     Active Substance: OXYCODONE
  7. POT CHLORIDE [Concomitant]
     Active Substance: POTASSIUM CHLORIDE
  8. FEROSUL [Concomitant]
     Active Substance: FERROUS SULFATE
  9. PROMETH/COD [Concomitant]
  10. ASPIRIN. [Concomitant]
     Active Substance: ASPIRIN
  11. COLCHICINE. [Concomitant]
     Active Substance: COLCHICINE
  12. COSENTYX [Suspect]
     Active Substance: SECUKINUMAB
     Indication: PSORIASIS
     Route: 058
     Dates: start: 20190822
  13. BENZONATATE. [Concomitant]
     Active Substance: BENZONATATE
  14. ASPIRIN. [Concomitant]
     Active Substance: ASPIRIN

REACTIONS (1)
  - Cardiac operation [None]
